APPROVED DRUG PRODUCT: OXAZEPAM
Active Ingredient: OXAZEPAM
Strength: 15MG
Dosage Form/Route: TABLET;ORAL
Application: A071494 | Product #001
Applicant: WATSON LABORATORIES INC
Approved: Apr 21, 1987 | RLD: No | RS: No | Type: DISCN